FAERS Safety Report 9827292 (Version 1)
Quarter: 2013Q4

REPORT INFORMATION
  Report Type: Spontaneous
  Country: US (occurrence: None)
  Receive Date: 20131223
  Receipt Date: 20131223
  Transmission Date: 20140711
  Serious: No
  Sender: FDA-Public Use
  Company Number: 220990LEO

PATIENT
  Age: 58 Year
  Sex: Male

DRUGS (6)
  1. PICATO [Suspect]
     Indication: ACTINIC KERATOSIS
     Route: 061
     Dates: start: 20130307, end: 20130309
  2. DICLOFENAC (DICLOFENAC) [Concomitant]
  3. HCTZ (HYDROCHLOROTHIAZIDE) [Concomitant]
  4. PRAVASTATIN  (PRAVASTATIN) [Concomitant]
  5. ENLAPRIL (ENLAPRIL) [Concomitant]
  6. ALLOPURINOL (ALLOPURINOL) [Concomitant]

REACTIONS (3)
  - Application site exfoliation [None]
  - Application site pruritus [None]
  - Application site fissure [None]
